FAERS Safety Report 5164886-8 (Version None)
Quarter: 2006Q4

REPORT INFORMATION
  Report Type: 
  Country: None (occurrence: None)
  Receive Date: 20061124
  Receipt Date: 20061107
  Transmission Date: 20070319
  Serious: Yes (Other)
  Sender: FDA-Public Use
  Company Number: 232790

PATIENT
  Age: 61 Year
  Sex: Female
  Weight: 76 kg

DRUGS (6)
  1. HERCEPTIN [Suspect]
     Indication: DRUG USE FOR UNKNOWN INDICATION
     Dosage: INTRAVENOUS
     Route: 042
     Dates: start: 20060925, end: 20060925
  2. ACETAMINOPHEN [Concomitant]
  3. ONDANSETRON HCL [Concomitant]
  4. DEXAMETHASONE TAB [Concomitant]
  5. ZANTAC [Concomitant]
  6. PHENERGAN (PROMETHAZINE HYDROCHLORIDE) [Concomitant]

REACTIONS (3)
  - ABDOMINAL PAIN [None]
  - FAECAL INCONTINENCE [None]
  - FLUSHING [None]
